FAERS Safety Report 15304147 (Version 1)
Quarter: 2018Q3

REPORT INFORMATION
  Report Type: Spontaneous
  Country: US (occurrence: US)
  Receive Date: 20180809
  Receipt Date: 20180809
  Transmission Date: 20181010
  Serious: Yes (Hospitalization)
  Sender: FDA-Public Use
  Company Number: None

PATIENT
  Age: 18 Year
  Sex: Female

DRUGS (12)
  1. KETOSTIX [Concomitant]
  2. NOVOLOG [Concomitant]
     Active Substance: INSULIN ASPART
  3. SODIUM CHLOR [Concomitant]
     Active Substance: SODIUM CHLORIDE
  4. CHLORTHALID [Concomitant]
  5. GLUCAGON. [Concomitant]
     Active Substance: GLUCAGON
  6. VENTOLIN [Concomitant]
     Active Substance: ALBUTEROL SULFATE
  7. CREON [Concomitant]
     Active Substance: PANCRELIPASE AMYLASE\PANCRELIPASE LIPASE\PANCRELIPASE PROTEASE
  8. LANTUS [Concomitant]
     Active Substance: INSULIN GLARGINE
  9. DOXYCYCL [Concomitant]
  10. PULMOZYME [Suspect]
     Active Substance: DORNASE ALFA
     Indication: CYSTIC FIBROSIS
     Dosage: ?          OTHER ROUTE:NEBULIZER?
     Dates: start: 20150908
  11. VITAMIN A [Concomitant]
     Active Substance: VITAMIN A
  12. ASPIRIN. [Concomitant]
     Active Substance: ASPIRIN

REACTIONS (2)
  - Cystic fibrosis [None]
  - Condition aggravated [None]

NARRATIVE: CASE EVENT DATE: 20180709
